FAERS Safety Report 25007441 (Version 1)
Quarter: 2025Q1

REPORT INFORMATION
  Report Type: Spontaneous
  Country: IN (occurrence: IN)
  Receive Date: 20250225
  Receipt Date: 20250225
  Transmission Date: 20250409
  Serious: Yes (Other)
  Sender: GLENMARK
  Company Number: IN-MLMSERVICE-20250207-PI400639-00306-1

PATIENT
  Age: 29 Year
  Sex: Female

DRUGS (2)
  1. TACROLIMUS [Suspect]
     Active Substance: TACROLIMUS
     Indication: Immunosuppressant drug therapy
     Route: 065
     Dates: start: 202308, end: 202311
  2. MYCOPHENOLATE MOFETIL [Concomitant]
     Active Substance: MYCOPHENOLATE MOFETIL
     Indication: Immunosuppressant drug therapy
     Route: 065
     Dates: start: 202308

REACTIONS (4)
  - Toxic neuropathy [Recovered/Resolved]
  - Toxicity to various agents [Recovered/Resolved]
  - Radiculopathy [Recovered/Resolved]
  - Demyelination [Recovered/Resolved]

NARRATIVE: CASE EVENT DATE: 20231101
